FAERS Safety Report 17841054 (Version 8)
Quarter: 2024Q2

REPORT INFORMATION
  Report Type: Spontaneous
  Country: US (occurrence: US)
  Receive Date: 20200529
  Receipt Date: 20240531
  Transmission Date: 20240716
  Serious: No
  Sender: FDA-Public Use
  Company Number: US-PFIZER INC-2020210374

PATIENT
  Age: 85 Year
  Sex: Male

DRUGS (5)
  1. EUCRISA [Suspect]
     Active Substance: CRISABOROLE
     Indication: Dermatitis
     Dosage: UNK UNK, 2X/DAY
     Route: 061
  2. EUCRISA [Suspect]
     Active Substance: CRISABOROLE
     Dosage: UNK UNK, 1X/DAY
     Route: 061
  3. EUCRISA [Suspect]
     Active Substance: CRISABOROLE
     Dosage: APPLY TOPICALLY DAILY
     Route: 061
  4. OXYCONTIN [Concomitant]
     Active Substance: OXYCODONE HYDROCHLORIDE
     Dosage: UNK
  5. AMIODARONE [Concomitant]
     Active Substance: AMIODARONE
     Dosage: UNK (INCREASE MY AMIODARONE)

REACTIONS (1)
  - Therapeutic product effect decreased [Unknown]
